FAERS Safety Report 6355868-9 (Version None)
Quarter: 2009Q3

REPORT INFORMATION
  Report Type: 
  Country: None (occurrence: None)
  Receive Date: 20090910
  Receipt Date: 20090910
  Transmission Date: 20100115
  Serious: Yes (Other)
  Sender: FDA-Public Use
  Company Number: None

PATIENT
  Age: 37 Year
  Sex: Female
  Weight: 51.2565 kg

DRUGS (1)
  1. LUPRON - DEPOT MONTHLY SHOT ABBOTT MANUFACTURE [Suspect]
     Indication: ENDOMETRIOSIS
     Dosage: MONTHLY
     Dates: start: 20090601, end: 20090701

REACTIONS (2)
  - MALAISE [None]
  - PRODUCT LABEL ISSUE [None]
